FAERS Safety Report 25981166 (Version 1)
Quarter: 2025Q4

REPORT INFORMATION
  Report Type: Spontaneous
  Country: TR (occurrence: TR)
  Receive Date: 20251030
  Receipt Date: 20251030
  Transmission Date: 20260117
  Serious: Yes (Other)
  Sender: DIFGEN PHARMACEUTICALS LLC
  Company Number: TR-Difgen-012241

PATIENT
  Age: 24 Year
  Sex: Male

DRUGS (1)
  1. NICOTINE [Suspect]
     Active Substance: NICOTINE
     Indication: Product used for unknown indication
     Dosage: LIQUID TOBACCO CONTAINING NICOTINE
     Route: 065

REACTIONS (1)
  - Acute myocardial infarction [Recovered/Resolved]
